FAERS Safety Report 13675096 (Version 1)
Quarter: 2017Q2

REPORT INFORMATION
  Report Type: Spontaneous
  Country: CN (occurrence: CN)
  Receive Date: 20170621
  Receipt Date: 20170621
  Transmission Date: 20170830
  Serious: Yes (Other)
  Sender: FDA-Public Use
  Company Number: CN-009507513-1706CHN006638

PATIENT
  Age: 83 Year
  Sex: Female
  Weight: 70 kg

DRUGS (2)
  1. IMIPENEM AND CILASTATIN [Suspect]
     Active Substance: CILASTATIN SODIUM\IMIPENEM
     Indication: LUNG INFECTION
     Dosage: 1 G, TID
     Route: 041
     Dates: start: 20170412, end: 20170413
  2. SODIUM CHLORIDE. [Suspect]
     Active Substance: SODIUM CHLORIDE
     Indication: ADJUVANT THERAPY
     Dosage: 100 ML, TID
     Route: 041
     Dates: start: 20170412, end: 20170413

REACTIONS (3)
  - Hyperpyrexia [Recovered/Resolved]
  - Chills [Recovered/Resolved]
  - Tic [Recovered/Resolved]

NARRATIVE: CASE EVENT DATE: 20170413
